FAERS Safety Report 5263436-5 (Version None)
Quarter: 2007Q1

REPORT INFORMATION
  Report Type: 
  Country: None (occurrence: None)
  Receive Date: 20061213
  Receipt Date: 20040903
  Transmission Date: 20070707
  Serious: No
  Sender: FDA-Public Use
  Company Number: 2004UW16595

PATIENT
  Age: 64 Year
  Sex: Male

DRUGS (2)
  1. IRESSA [Suspect]
  2. CAMPTOSAR [Concomitant]

REACTIONS (2)
  - METASTASES TO CENTRAL NERVOUS SYSTEM [None]
  - METASTASES TO LIVER [None]
